FAERS Safety Report 4906371-1 (Version None)
Quarter: 2006Q1

REPORT INFORMATION
  Report Type: 
  Country: None (occurrence: None)
  Receive Date: 20060207
  Receipt Date: 20060124
  Transmission Date: 20060701
  Serious: Yes (Hospitalization)
  Sender: FDA-Public Use
  Company Number: FR200511002461

PATIENT
  Age: 60 Year
  Sex: Male

DRUGS (1)
  1. GEMZAR [Suspect]
     Indication: PANCREATIC CARCINOMA
     Dosage: 1000 MG/M2, WEEKLY (1/W), INTRAVENOUS
     Route: 042
     Dates: start: 20051101

REACTIONS (3)
  - BILIARY TRACT DISORDER [None]
  - CHOLESTASIS [None]
  - DISEASE RECURRENCE [None]
